FAERS Safety Report 4945434-1 (Version None)
Quarter: 2006Q1

REPORT INFORMATION
  Report Type: 
  Country: None (occurrence: None)
  Receive Date: 20060316
  Receipt Date: 20060307
  Transmission Date: 20060701
  Serious: Yes (Hospitalization)
  Sender: FDA-Public Use
  Company Number: US-GLAXOSMITHKLINE-A0596500A

PATIENT
  Age: 67 Year
  Sex: Female

DRUGS (11)
  1. LOTRONEX [Suspect]
     Indication: IRRITABLE BOWEL SYNDROME
     Dosage: .5MG FIVE TIMES PER DAY
     Route: 048
     Dates: start: 20050901
  2. LOTRONEX [Suspect]
     Dosage: 1MG TWICE PER DAY
     Route: 048
     Dates: start: 20060311
  3. CARAFATE [Concomitant]
  4. PROTONIX [Concomitant]
  5. CREON [Concomitant]
  6. ASPIRIN [Concomitant]
  7. MONOPRIL [Concomitant]
  8. TOPROL-XL [Concomitant]
  9. PRAVASTATIN [Concomitant]
  10. LANTUS [Concomitant]
  11. NITROGLYCERIN [Concomitant]

REACTIONS (10)
  - ADVERSE EVENT [None]
  - DIARRHOEA [None]
  - DRUG INEFFECTIVE [None]
  - FEELING COLD [None]
  - HOT FLUSH [None]
  - INSOMNIA [None]
  - NAUSEA [None]
  - POISONING [None]
  - PRESCRIBED OVERDOSE [None]
  - PRURITUS [None]
